FAERS Safety Report 17529469 (Version 1)
Quarter: 2020Q1

REPORT INFORMATION
  Report Type: Spontaneous
  Country: US (occurrence: US)
  Receive Date: 20200311
  Receipt Date: 20200311
  Transmission Date: 20200409
  Serious: No
  Sender: FDA-Public Use
  Company Number: US-SA-2020SA059638

PATIENT

DRUGS (1)
  1. KEVZARA [Suspect]
     Active Substance: SARILUMAB
     Dosage: 200 MG, QOW
     Route: 058

REACTIONS (5)
  - Rash papular [Not Recovered/Not Resolved]
  - Contusion [Unknown]
  - Rash erythematous [Recovering/Resolving]
  - Rash pruritic [Not Recovered/Not Resolved]
  - Feeling hot [Unknown]
